FAERS Safety Report 26107521 (Version 1)
Quarter: 2025Q4

REPORT INFORMATION
  Report Type: Spontaneous
  Country: US (occurrence: US)
  Receive Date: 20251201
  Receipt Date: 20251201
  Transmission Date: 20260119
  Serious: No
  Sender: BIOCRYST PHARMACEUTICALS
  Company Number: US-BIOCRYST PHARMACEUTICALS, INC.-2025BCR01483

PATIENT

DRUGS (1)
  1. BEROTRALSTAT [Suspect]
     Active Substance: BEROTRALSTAT
     Dosage: 150.000 MG, QD

REACTIONS (1)
  - Liver function test [Unknown]
